FAERS Safety Report 8961290 (Version 1)
Quarter: 2012Q4

REPORT INFORMATION
  Report Type: 
  Country: US (occurrence: US)
  Receive Date: 20121213
  Receipt Date: 20121213
  Transmission Date: 20130627
  Serious: Yes (Death, Hospitalization)
  Sender: FDA-Public Use
  Company Number: US-BAYER-2012-129351

PATIENT
  Age: 23 Year
  Sex: Female
  Weight: 102.4 kg

DRUGS (24)
  1. YAZ [Suspect]
     Dosage: UNK;daily
  2. ATROVENT [Concomitant]
  3. ALBUTEROL [Concomitant]
     Indication: ASTHMA
     Dosage: UNK
     Dates: start: 20081018
  4. ALBUTEROL [Concomitant]
     Indication: ASTHMA
  5. PREDNISONE [Concomitant]
     Indication: ASTHMA
  6. Z-PAK [Concomitant]
  7. ALLEGRA [Concomitant]
     Dosage: UNK
     Route: 048
     Dates: start: 20061018
  8. PROAIR HFA [Concomitant]
     Indication: ASTHMA
     Dosage: UNK
     Route: 050
     Dates: start: 20070911, end: 20081018
  9. ADVAIR [Concomitant]
     Indication: ASTHMA
     Dosage: 500/250 mg discus ; UNK
     Dates: start: 20081018
  10. SINGULAIR [Concomitant]
     Indication: ASTHMA
     Dosage: 10 mg, daily
     Route: 048
     Dates: start: 20081018
  11. SYNTHROID [Concomitant]
     Indication: HYPOTHYROIDISM
     Dosage: 0.075 mg, Daily
     Route: 048
     Dates: start: 20081018
  12. NASACORT [Concomitant]
     Dosage: UNK
     Route: 045
     Dates: start: 20081018
  13. MULTIVITAMIN [Concomitant]
     Dosage: UNK;Daily
     Route: 048
     Dates: start: 20081018
  14. ROCEPHIN [Concomitant]
  15. ERYTHROMYCIN [Concomitant]
  16. DECADRON [Concomitant]
  17. XOPENEX [Concomitant]
  18. INSULIN [Concomitant]
     Dosage: UNK UNK, PRN
  19. CARDIZEM [Concomitant]
  20. NEO-SYNEPHRINE [Concomitant]
  21. VASORPESSORS [Concomitant]
     Indication: METABOLIC ACIDOSIS
  22. SODIUM BICARBONATE [Concomitant]
     Indication: METABOLIC ACIDOSIS
  23. METHYLPREDNISOLON [Concomitant]
     Indication: ASTHMA
     Dosage: UNK
     Route: 048
     Dates: end: 20081018
  24. AZITHROMYCIN [Concomitant]
     Dosage: 250 mg, UNK
     Route: 048
     Dates: start: 20081018

REACTIONS (1)
  - Cardio-respiratory arrest [Fatal]
